FAERS Safety Report 7471843-5 (Version None)
Quarter: 2011Q2

REPORT INFORMATION
  Report Type: 
  Country: None (occurrence: None)
  Receive Date: 20110511
  Receipt Date: 20100521
  Transmission Date: 20111010
  Serious: No
  Sender: FDA-Public Use
  Company Number: A0863523A

PATIENT
  Age: 84 Year
  Sex: Female

DRUGS (2)
  1. FEMARA [Concomitant]
     Dates: start: 20100405
  2. TYKERB [Suspect]
     Dosage: 250MG FIVE TIMES PER DAY
     Route: 065
     Dates: start: 20100513

REACTIONS (4)
  - HYPERHIDROSIS [None]
  - DIARRHOEA [None]
  - EPISTAXIS [None]
  - FATIGUE [None]
